FAERS Safety Report 11573803 (Version 5)
Quarter: 2016Q1

REPORT INFORMATION
  Report Type: Report from Study
  Country: US (occurrence: US)
  Receive Date: 20150929
  Receipt Date: 20160203
  Transmission Date: 20160525
  Serious: Yes (Hospitalization)
  Sender: FDA-Public Use
  Company Number: US-AMGEN-USASP2015100046

PATIENT
  Age: 66 Year
  Sex: Female

DRUGS (1)
  1. ENBREL [Suspect]
     Active Substance: ETANERCEPT
     Indication: RHEUMATOID ARTHRITIS
     Dosage: 50 MG, QWK
     Route: 065
     Dates: start: 20150909

REACTIONS (5)
  - Night sweats [Unknown]
  - Device issue [Unknown]
  - Gastritis [Unknown]
  - Incorrect dose administered [Unknown]
  - Pain [Unknown]

NARRATIVE: CASE EVENT DATE: 2015
